FAERS Safety Report 7376449-4 (Version None)
Quarter: 2011Q1

REPORT INFORMATION
  Report Type: 
  Country: None (occurrence: None)
  Receive Date: 20110325
  Receipt Date: 20110318
  Transmission Date: 20110831
  Serious: Yes (Hospitalization)
  Sender: FDA-Public Use
  Company Number: US-B.I. PHARMACEUTICALS,INC./RIDGEFIELD-2011-BP-02718BP

PATIENT
  Age: 72 Year
  Sex: Female

DRUGS (1)
  1. PRADAXA [Suspect]
     Dosage: 300 MG
     Dates: end: 20110131

REACTIONS (5)
  - INTRA-ABDOMINAL HAEMORRHAGE [None]
  - HYPOTENSION [None]
  - ABDOMINAL ABSCESS [None]
  - ANAEMIA [None]
  - HAEMORRHAGE [None]
